FAERS Safety Report 9469350 (Version 1)
Quarter: 2013Q3

REPORT INFORMATION
  Report Type: Spontaneous
  Country: US (occurrence: None)
  Receive Date: 20130815
  Receipt Date: 20130815
  Transmission Date: 20140515
  Serious: Yes (Hospitalization)
  Sender: FDA-Public Use
  Company Number: 2013-1245

PATIENT
  Age: 74 Year
  Sex: Male

DRUGS (11)
  1. KYPROLIS [Suspect]
     Indication: PLASMA CELL MYELOMA
     Dosage: (2 IN 1 WK), INTRAVENOUS
     Route: 042
     Dates: start: 20130715, end: 20130724
  2. OXYCONTIN (OXYCODONE HYDROCHLORIDE) (OXYCODONE HYDROCHLORIDE) [Concomitant]
  3. ALLOPURINOL (ALLOPURINOL) (ALLOPURINOL) [Concomitant]
  4. REMERON (MIRTAZAPINE) (MIRTAZAPINE) [Concomitant]
  5. FINASTERIDE (FINASTERIDE) (FINASTERIDE) [Concomitant]
  6. TOPROL (METOPROLOL SUCCINATE) (METOPROLOL SUCCINATE) [Concomitant]
  7. OXYCODONE (OXYCODONE) (OXYCODONE) [Concomitant]
  8. CYANOCOBALAMIN (CYANOCOBALAMIN) (CYANOCOBALAMIN) [Concomitant]
  9. OXCARBAZEPINE (OXCARBAZEPINE) (OXCARBAZEPINE) [Concomitant]
  10. CALCIUM (CALCIUM) (CALCIUM) [Concomitant]
  11. WARFARIN (WARFARIN) (WARFARIN) [Concomitant]

REACTIONS (7)
  - Confusional state [None]
  - Dizziness [None]
  - Dizziness [None]
  - Asthenia [None]
  - Burning sensation [None]
  - Constipation [None]
  - Renal injury [None]
